FAERS Safety Report 20252461 (Version 1)
Quarter: 2021Q4

REPORT INFORMATION
  Report Type: Spontaneous
  Country: US (occurrence: US)
  Receive Date: 20211229
  Receipt Date: 20211229
  Transmission Date: 20220303
  Serious: No
  Sender: FDA-Public Use
  Company Number: US-COOPERSURGICAL, INC.-US-2021CPS001701

PATIENT
  Age: 29 Year
  Sex: Female
  Weight: 64.399 kg

DRUGS (3)
  1. PARAGARD T 380A [Suspect]
     Active Substance: COPPER
     Indication: Contraception
     Dosage: UNK
     Route: 015
     Dates: start: 20200702, end: 202105
  2. IRON                               /00023503/ [Concomitant]
     Indication: Anaemia
     Route: 065
  3. PRENATAL VITAMINS                  /02014401/ [Concomitant]
     Indication: Vitamin supplementation
     Route: 065

REACTIONS (1)
  - Device expulsion [Recovered/Resolved]

NARRATIVE: CASE EVENT DATE: 20210501
